FAERS Safety Report 7141677-X (Version None)
Quarter: 2010Q4

REPORT INFORMATION
  Report Type: 
  Country: None (occurrence: None)
  Receive Date: 20101207
  Receipt Date: 20101122
  Transmission Date: 20110411
  Serious: Yes (Other)
  Sender: FDA-Public Use
  Company Number: US-SANOFI-AVENTIS-2010SA072131

PATIENT
  Age: 64 Year
  Sex: Female

DRUGS (6)
  1. PLAVIX [Suspect]
     Route: 065
     Dates: start: 19970101
  2. LANTUS [Concomitant]
     Indication: TYPE 2 DIABETES MELLITUS
     Dosage: DOSE:23 UNIT(S)
     Route: 058
     Dates: start: 20100601
  3. SOLOSTAR [Concomitant]
     Indication: TYPE 2 DIABETES MELLITUS
     Dates: start: 20100601
  4. SYNTHROID [Concomitant]
  5. TOPROL-XL [Concomitant]
  6. GLUCOVANCE [Concomitant]
     Dosage: 5-500 BID

REACTIONS (3)
  - CARDIAC FAILURE CONGESTIVE [None]
  - DISTURBANCE IN ATTENTION [None]
  - EYE SWELLING [None]
